FAERS Safety Report 13932739 (Version 3)
Quarter: 2018Q3

REPORT INFORMATION
  Report Type: Report from Study
  Country: FR (occurrence: FR)
  Receive Date: 20170904
  Receipt Date: 20180710
  Transmission Date: 20181010
  Serious: Yes (Hospitalization)
  Sender: FDA-Public Use
  Company Number: FR-ASTRAZENECA-2017SE89012

PATIENT
  Age: 20570 Day
  Sex: Male

DRUGS (11)
  1. DURVALUMAB. [Suspect]
     Active Substance: DURVALUMAB
     Indication: SQUAMOUS CELL CARCINOMA OF HEAD AND NECK
     Dosage: 1120 MG ONCE A DAY
     Route: 042
     Dates: end: 20170707
  2. INNOHEP [Concomitant]
     Active Substance: TINZAPARIN SODIUM
  3. EMEND [Concomitant]
     Active Substance: APREPITANT
  4. ZOPHREN [Concomitant]
     Active Substance: ONDANSETRON
  5. BDD BICARBONATE+ELUDRIL [Concomitant]
  6. DURVALUMAB. [Suspect]
     Active Substance: DURVALUMAB
     Indication: SQUAMOUS CELL CARCINOMA OF HEAD AND NECK
     Dosage: 1120 MG ONCE A DAY
     Route: 042
     Dates: start: 20170628, end: 20170628
  7. CISPLATIN. [Suspect]
     Active Substance: CISPLATIN
     Indication: SQUAMOUS CELL CARCINOMA OF HEAD AND NECK
     Route: 042
     Dates: start: 20170629, end: 20170629
  8. TAXOTERE [Suspect]
     Active Substance: DOCETAXEL
     Indication: SQUAMOUS CELL CARCINOMA OF HEAD AND NECK
     Route: 042
     Dates: start: 20170629, end: 20170629
  9. SKENAN [Concomitant]
     Active Substance: MORPHINE SULFATE
  10. ACTISKENAN [Concomitant]
     Active Substance: MORPHINE SULFATE
  11. 5?FU [Suspect]
     Active Substance: FLUOROURACIL
     Indication: SQUAMOUS CELL CARCINOMA OF HEAD AND NECK
     Route: 042
     Dates: start: 20170629, end: 20170705

REACTIONS (2)
  - Mucosal inflammation [Recovered/Resolved]
  - Febrile neutropenia [Recovered/Resolved]

NARRATIVE: CASE EVENT DATE: 20170705
